FAERS Safety Report 9029325 (Version 3)
Quarter: 2014Q2

REPORT INFORMATION
  Report Type: Spontaneous
  Country: CA (occurrence: CA)
  Receive Date: 20130124
  Receipt Date: 20140506
  Transmission Date: 20141212
  Serious: Yes (Hospitalization, Other)
  Sender: FDA-Public Use
  Company Number: CA-BAXTER-2013BAX000835

PATIENT
  Age: 65 Year
  Sex: Male
  Weight: 79.4 kg

DRUGS (23)
  1. GAMMAGARD LIQUID -IMMUNE GLOBULIN INTRAVENOUS (HUMAN), [IGIV] 10% [Suspect]
     Indication: HYPOGAMMAGLOBULINAEMIA
     Dosage: 50 ML 4/4
     Route: 042
     Dates: start: 20121224, end: 20121224
  2. GAMMAGARD LIQUID -IMMUNE GLOBULIN INTRAVENOUS (HUMAN), [IGIV] 10% [Suspect]
     Indication: CHRONIC LYMPHOCYTIC LEUKAEMIA
     Dosage: 300 ML 1/3
     Route: 042
     Dates: start: 20121224, end: 20121224
  3. TYLENOL [Concomitant]
     Indication: PRODUCT USED FOR UNKNOWN INDICATION
     Route: 048
     Dates: start: 20121224
  4. TYLENOL [Concomitant]
     Route: 048
     Dates: start: 20121224
  5. TYLENOL [Concomitant]
     Route: 048
     Dates: start: 20121224
  6. TAZOCIN [Concomitant]
     Indication: PRODUCT USED FOR UNKNOWN INDICATION
     Route: 042
     Dates: start: 20121224
  7. TAZOCIN [Concomitant]
     Route: 042
     Dates: start: 20121224
  8. TAZOCIN [Concomitant]
     Route: 042
     Dates: start: 20121224
  9. TAZOCIN [Concomitant]
     Route: 042
     Dates: start: 20121224
  10. TAZOCIN [Concomitant]
     Route: 042
     Dates: start: 20121224
  11. VALACYCLOVIR [Concomitant]
     Indication: PRODUCT USED FOR UNKNOWN INDICATION
     Route: 048
     Dates: start: 20121224
  12. VALACYCLOVIR [Concomitant]
     Route: 048
     Dates: start: 20121224
  13. LANSOPRAZOLE [Concomitant]
     Indication: PRODUCT USED FOR UNKNOWN INDICATION
     Route: 048
     Dates: start: 20121224
  14. ATOVAQUONE [Concomitant]
     Indication: PRODUCT USED FOR UNKNOWN INDICATION
     Route: 048
     Dates: start: 20121224
  15. DOXYCYCLINE [Concomitant]
     Indication: PRODUCT USED FOR UNKNOWN INDICATION
     Route: 048
     Dates: start: 20121224
  16. DOXYCYCLINE [Concomitant]
     Route: 048
     Dates: start: 20121224
  17. MAXERAN [Concomitant]
     Indication: PRODUCT USED FOR UNKNOWN INDICATION
     Route: 048
     Dates: start: 20121224
  18. MAXERAN [Concomitant]
     Route: 048
     Dates: start: 20121224
  19. SALBUTAMOL [Concomitant]
     Indication: PRODUCT USED FOR UNKNOWN INDICATION
     Dosage: 1-2 PUFFS
     Dates: start: 20121224
  20. SALBUTAMOL [Concomitant]
     Dosage: 1-2 PUFFS
     Dates: start: 20121224
  21. SALBUTAMOL [Concomitant]
     Dosage: 1-2 PUFFS
     Dates: start: 20121224
  22. SALBUTAMOL [Concomitant]
     Dosage: 1-2 PUFFS
     Dates: start: 20121224
  23. DALTEPARIN [Concomitant]
     Indication: PRODUCT USED FOR UNKNOWN INDICATION
     Dosage: 5000 U
     Route: 058
     Dates: start: 20121224

REACTIONS (10)
  - Body temperature increased [Recovered/Resolved]
  - Hypertension [Recovered/Resolved]
  - Pyrexia [Recovered/Resolved]
  - Chills [Recovered/Resolved]
  - Dyspnoea [Recovered/Resolved]
  - Tachycardia [Recovered/Resolved]
  - Hyperhidrosis [Recovered/Resolved]
  - Hypoxia [Recovered/Resolved]
  - Hyperthermia [Unknown]
  - Myocardial infarction [Unknown]
